FAERS Safety Report 25721294 (Version 1)
Quarter: 2025Q3

REPORT INFORMATION
  Report Type: Spontaneous
  Country: US (occurrence: None)
  Receive Date: 20250822
  Receipt Date: 20250822
  Transmission Date: 20251021
  Serious: Yes (Life-Threatening, Hospitalization, Disabling)
  Sender: FDA-CTU
  Company Number: None

PATIENT
  Age: 85 Year
  Sex: Female

DRUGS (1)
  1. KENALOG [Suspect]
     Active Substance: TRIAMCINOLONE ACETONIDE
     Dates: start: 20250818, end: 20250818

REACTIONS (4)
  - Necrotising soft tissue infection [None]
  - Post procedural infection [None]
  - Localised infection [None]
  - Leg amputation [None]

NARRATIVE: CASE EVENT DATE: 20250818
